FAERS Safety Report 9818537 (Version 2)
Quarter: 2014Q1

REPORT INFORMATION
  Report Type: Spontaneous
  Country: US (occurrence: US)
  Receive Date: 20140115
  Receipt Date: 20140128
  Transmission Date: 20141002
  Serious: Yes (Other)
  Sender: FDA-Public Use
  Company Number: US-TEVA-456263USA

PATIENT
  Age: 25 Year
  Sex: Female
  Weight: 86.26 kg

DRUGS (1)
  1. PLAN B ONE-STEP [Suspect]
     Indication: POST COITAL CONTRACEPTION
     Dosage: 1.5 MILLIGRAM DAILY;
     Route: 048
     Dates: start: 20140112, end: 20140112

REACTIONS (5)
  - Exposure during pregnancy [Unknown]
  - Back pain [Unknown]
  - Metrorrhagia [Unknown]
  - Abdominal pain [Unknown]
  - Pregnancy [Unknown]
